FAERS Safety Report 8369444-X (Version None)
Quarter: 2012Q2

REPORT INFORMATION
  Report Type: 
  Country: None (occurrence: None)
  Receive Date: 20120518
  Receipt Date: 20120514
  Transmission Date: 20120825
  Serious: Yes (Other)
  Sender: FDA-Public Use
  Company Number: US-TEVA-338301USA

PATIENT
  Age: 51 Year
  Sex: Male

DRUGS (2)
  1. LISINOPRIL [Suspect]
     Indication: HYPERTENSION
     Route: 065
  2. HYDROCHLOROTHIAZIDE [Suspect]
     Indication: HYPERTENSION
     Route: 065

REACTIONS (3)
  - DRUG ERUPTION [None]
  - PSEUDOLYMPHOMA [None]
  - LYMPHOCYTE COUNT ABNORMAL [None]
